FAERS Safety Report 24722975 (Version 1)
Quarter: 2024Q4

REPORT INFORMATION
  Report Type: Spontaneous
  Country: SE (occurrence: SE)
  Receive Date: 20241211
  Receipt Date: 20241211
  Transmission Date: 20250114
  Serious: Yes (Other)
  Sender: TEVA
  Company Number: None

PATIENT
  Age: 48 Year
  Sex: Female

DRUGS (8)
  1. FLUOXETINE [Suspect]
     Active Substance: FLUOXETINE HYDROCHLORIDE
     Indication: Mixed anxiety and depressive disorder
     Dosage: DOSE INCREASED TO 20 MGX2, FLUOXETIN
     Route: 048
     Dates: start: 20240928
  2. MELATONIN [Concomitant]
     Active Substance: MELATONIN
     Indication: Product used for unknown indication
     Dosage: 1-2 TABLETS AT 9PM
     Route: 065
     Dates: start: 20230202
  3. BACLOFEN [Concomitant]
     Active Substance: BACLOFEN
     Indication: Product used for unknown indication
     Dosage: 1X1 FOR THE NIGHT
     Route: 065
     Dates: start: 20231204
  4. BLISSEL [Concomitant]
     Indication: Product used for unknown indication
     Dosage: ACCORDING TO SPECIAL PRESCRIPTION
     Route: 065
     Dates: start: 20231113
  5. METHYLPHENIDATE [Concomitant]
     Active Substance: METHYLPHENIDATE
     Indication: Product used for unknown indication
     Route: 065
     Dates: start: 20240824
  6. DROSPIRENONE [Concomitant]
     Active Substance: DROSPIRENONE
     Indication: Product used for unknown indication
     Dosage: ACCORDING TO SPECIAL PRESCRIPTION
     Route: 065
     Dates: start: 20231114
  7. DIENOGEST\ETHINYL ESTRADIOL [Concomitant]
     Active Substance: DIENOGEST\ETHINYL ESTRADIOL
     Indication: Product used for unknown indication
     Dosage: ACCORDING TO SPECIAL PRESCRIPTION
     Route: 065
     Dates: start: 20240314
  8. ESOMEPRAZOLE [Concomitant]
     Active Substance: ESOMEPRAZOLE
     Indication: Product used for unknown indication
     Dosage: 1X1
     Route: 065
     Dates: start: 20220315

REACTIONS (4)
  - Lower gastrointestinal haemorrhage [Recovered/Resolved]
  - Headache [Recovering/Resolving]
  - Dizziness [Recovered/Resolved]
  - Muscle contractions involuntary [Recovering/Resolving]

NARRATIVE: CASE EVENT DATE: 20241001
